FAERS Safety Report 8908132 (Version 2)
Quarter: 2012Q4

REPORT INFORMATION
  Report Type: 
  Country: US (occurrence: US)
  Receive Date: 20121114
  Receipt Date: 20121213
  Transmission Date: 20130627
  Serious: Yes (Hospitalization)
  Sender: FDA-Public Use
  Company Number: US-BAYER-2012-117120

PATIENT
  Age: 45 Year
  Sex: Female
  Weight: 66.67 kg

DRUGS (1)
  1. MIRENA [Suspect]
     Indication: MENORRHAGIA
     Dosage: 20 mcg/24hr, CONT
     Route: 015
     Dates: start: 20110328

REACTIONS (4)
  - Ovarian cyst [Recovered/Resolved]
  - Muscle disorder [Recovered/Resolved]
  - Uterine leiomyoma [None]
  - Abdominal pain [Recovered/Resolved]
